FAERS Safety Report 17952812 (Version 3)
Quarter: 2020Q3

REPORT INFORMATION
  Report Type: Spontaneous
  Country: US (occurrence: US)
  Receive Date: 20200627
  Receipt Date: 20200930
  Transmission Date: 20201103
  Serious: Yes (Death, Life-Threatening, Hospitalization, Other)
  Sender: FDA-Public Use
  Company Number: US-DRREDDYS-USA/USA/20/0124528

PATIENT
  Age: 71 Year
  Sex: Female

DRUGS (1)
  1. ALLOPURINOL. [Suspect]
     Active Substance: ALLOPURINOL
     Indication: GOUT
     Route: 065

REACTIONS (11)
  - Large intestinal ulcer [Fatal]
  - Stevens-Johnson syndrome [Fatal]
  - Gastrointestinal haemorrhage [Fatal]
  - Ileal ulcer [Fatal]
  - Respiratory failure [Fatal]
  - Septic shock [Fatal]
  - Gastritis [Fatal]
  - Diarrhoea haemorrhagic [Fatal]
  - Acute kidney injury [Fatal]
  - Mucosal ulceration [Fatal]
  - Toxic epidermal necrolysis [Fatal]
